FAERS Safety Report 21245503 (Version 1)
Quarter: 2022Q3

REPORT INFORMATION
  Report Type: Spontaneous
  Country: IT (occurrence: IT)
  Receive Date: 20220824
  Receipt Date: 20220824
  Transmission Date: 20221027
  Serious: Yes (Other)
  Sender: FDA-Public Use
  Company Number: IT-SUN PHARMACEUTICAL INDUSTRIES LTD-2022RR-349664

PATIENT
  Age: 58 Year
  Sex: Female

DRUGS (10)
  1. OCTREOTIDE [Suspect]
     Active Substance: OCTREOTIDE
     Indication: Gastric cancer
     Dosage: 30 MILLIGRAM, 1DOSE/28DAYS
     Route: 030
     Dates: start: 200504, end: 200508
  2. OCTREOTIDE [Suspect]
     Active Substance: OCTREOTIDE
     Dosage: 30 MILLIGRAM, 1DOSE/28DAYS
     Route: 030
     Dates: start: 200810
  3. OXALIPLATIN [Suspect]
     Active Substance: OXALIPLATIN
     Indication: Gastric cancer
     Dosage: 130 MILLIGRAM/SQ. METER, EVERY 3 WEEKS
     Route: 065
     Dates: start: 200605, end: 200608
  4. CAPECITABINE [Suspect]
     Active Substance: CAPECITABINE
     Indication: Gastric cancer
     Dosage: 2000 MILLIGRAM/SQ. METER, 14 CONSECUTIVE DAYS
     Route: 065
     Dates: start: 200605, end: 200608
  5. CISPLATIN [Suspect]
     Active Substance: CISPLATIN
     Indication: Gastric cancer
     Dosage: 80 MILLIGRAM/SQ. METER, ON DAY 1
     Route: 065
     Dates: start: 200802, end: 200808
  6. DACARBAZINE [Suspect]
     Active Substance: DACARBAZINE
     Indication: Gastric cancer
     Dosage: 200 MILLIGRAM/SQ. METER
     Route: 065
     Dates: start: 200609, end: 200703
  7. EPIRUBICIN [Suspect]
     Active Substance: EPIRUBICIN
     Indication: Gastric cancer
     Dosage: 30 MILLIGRAM/SQ. METER
     Route: 065
     Dates: start: 200609, end: 200703
  8. ETOPOSIDE [Suspect]
     Active Substance: ETOPOSIDE
     Indication: Gastric cancer
     Dosage: 120 MILLIGRAM/SQ. METER, FOR 3 CONSECUTIVE DAYS
     Route: 065
     Dates: start: 200802, end: 200808
  9. FLUOROURACIL [Suspect]
     Active Substance: FLUOROURACIL
     Indication: Gastric cancer
     Dosage: 500 MILLIGRAM/SQ. METER
     Route: 065
     Dates: start: 200609, end: 200703
  10. EVEROLIMUS [Suspect]
     Active Substance: EVEROLIMUS
     Indication: Gastric cancer
     Dosage: 10 MILLIGRAM, DAILY
     Route: 065

REACTIONS (4)
  - Disease progression [Unknown]
  - Nausea [Unknown]
  - Neutropenia [Unknown]
  - Thrombocytopenia [Unknown]
